FAERS Safety Report 4310566-8 (Version None)
Quarter: 2004Q1

REPORT INFORMATION
  Report Type: 
  Country: None (occurrence: None)
  Receive Date: 20040303
  Receipt Date: 20040219
  Transmission Date: 20041129
  Serious: Yes (Death, Hospitalization)
  Sender: FDA-Public Use
  Company Number: DE-GLAXOSMITHKLINE-B0324072A

PATIENT
  Age: 59 Year
  Sex: Male

DRUGS (14)
  1. PAROXETINE HCL [Suspect]
     Indication: PAIN
     Dosage: 10MG PER DAY
     Route: 048
     Dates: start: 20031009, end: 20031018
  2. DIAZEPAM [Suspect]
     Indication: PAIN
     Dosage: 45MG PER DAY
     Route: 048
     Dates: start: 20031011, end: 20031016
  3. ROFECOXIB [Suspect]
     Indication: SPINAL CORD DISORDER
     Dosage: 25MG PER DAY
     Route: 048
     Dates: start: 20000101, end: 20031018
  4. GLYBURIDE [Suspect]
     Indication: DIABETES MELLITUS
     Dosage: 10.5MG PER DAY
     Route: 048
     Dates: end: 20031018
  5. BISOPROLOL FUMARATE AND HYDROCHLOROTHIAZIDE [Suspect]
     Indication: HYPERTENSION
     Dosage: 7.5MG PER DAY
     Route: 048
     Dates: end: 20031025
  6. ALLOPURINOL [Concomitant]
     Dosage: 300MG PER DAY
     Route: 048
     Dates: end: 20031018
  7. ACETYL SALICYLIC ACID [Concomitant]
     Dosage: 200MG PER DAY
     Route: 048
     Dates: end: 20031018
  8. METFORMIN HYDROCHLORIDE [Concomitant]
     Indication: DIABETES MELLITUS
     Dosage: 2550MG PER DAY
     Route: 048
     Dates: end: 20031018
  9. FENTANYL [Concomitant]
     Dosage: 50MG PER DAY
     Dates: start: 20031018, end: 20031021
  10. FENTANYL [Concomitant]
     Dosage: 75MG PER DAY
     Dates: start: 20031022
  11. AMLODIPINE [Concomitant]
     Dosage: 10MG PER DAY
     Dates: start: 20031020
  12. CHLORAL HYDRATE [Concomitant]
     Dosage: 1SP PER DAY
     Dates: start: 20031021, end: 20031022
  13. CHLORMETHIAZOLE EDISYLATE [Concomitant]
     Dosage: 2CAP PER DAY
     Dates: start: 20031023
  14. DIPYRONE [Concomitant]
     Dates: start: 20031023

REACTIONS (4)
  - CARDIAC FAILURE [None]
  - CONFUSIONAL STATE [None]
  - DRUG INTERACTION [None]
  - FOREIGN BODY ASPIRATION [None]
